FAERS Safety Report 7009295-1 (Version None)
Quarter: 2010Q3

REPORT INFORMATION
  Report Type: 
  Country: None (occurrence: None)
  Receive Date: 20100923
  Receipt Date: 20100913
  Transmission Date: 20110219
  Serious: Yes (Hospitalization)
  Sender: FDA-Public Use
  Company Number: US-NOVOPROD-287207

PATIENT
  Age: 6 Year
  Sex: Female
  Weight: 19.048 kg

DRUGS (5)
  1. NORDITROPIN NORDIFLEX [Suspect]
     Indication: GROWTH HORMONE DEFICIENCY
     Dosage: .825 MG, QD
     Route: 058
     Dates: start: 20090325, end: 20090418
  2. NORDITROPIN NORDIFLEX [Suspect]
     Dosage: .45 MG, QD
     Route: 058
     Dates: start: 20090505, end: 20090512
  3. NORDITROPIN NORDIFLEX [Suspect]
     Dosage: .825 MG, QD
     Route: 058
     Dates: start: 20090513
  4. SYNTHROID [Concomitant]
     Indication: HYPOTHYROIDISM
     Dosage: 50 UG, QD
     Route: 048
  5. PREVACID [Concomitant]
     Indication: PRODUCT USED FOR UNKNOWN INDICATION
     Dosage: 15 MG, QD
     Route: 048

REACTIONS (3)
  - COUGH [None]
  - INFLUENZA LIKE ILLNESS [None]
  - TRANSIENT ISCHAEMIC ATTACK [None]
